FAERS Safety Report 9103561 (Version 1)
Quarter: 2013Q1

REPORT INFORMATION
  Report Type: Spontaneous
  Country: JP (occurrence: JP)
  Receive Date: 20130218
  Receipt Date: 20130218
  Transmission Date: 20140127
  Serious: Yes (Hospitalization)
  Sender: FDA-Public Use
  Company Number: JP-GLAXOSMITHKLINE-B0862452A

PATIENT
  Age: 75 None
  Sex: Female

DRUGS (8)
  1. ARIXTRA [Suspect]
     Indication: THROMBOSIS PROPHYLAXIS
     Dosage: 2.5MG PER DAY
     Route: 058
     Dates: start: 20130108, end: 20130118
  2. LOXOPROFEN [Concomitant]
     Indication: PAIN
     Route: 048
     Dates: start: 20130110
  3. MUCOSTA [Concomitant]
     Indication: PAIN
     Route: 048
     Dates: start: 20130110
  4. AMLODIN [Concomitant]
     Indication: HYPERTENSION
     Dosage: 1IUAX PER DAY
     Route: 048
  5. MIYA-BM [Concomitant]
     Dosage: 1IUAX THREE TIMES PER DAY
     Route: 048
     Dates: start: 20130114, end: 20130117
  6. FERO-GRADUMET [Concomitant]
     Indication: ANAEMIA
     Dosage: 1IUAX TWICE PER DAY
     Route: 048
     Dates: start: 20130115, end: 20130118
  7. MINIPRESS [Concomitant]
     Indication: DYSURIA
     Dosage: 1IUAX TWICE PER DAY
     Route: 048
     Dates: start: 20130116
  8. CHINESE MEDICINE [Concomitant]
     Indication: DYSURIA
     Dosage: 1IUAX THREE TIMES PER DAY
     Route: 048
     Dates: start: 20130116

REACTIONS (8)
  - Retroperitoneal haematoma [Recovering/Resolving]
  - Intra-abdominal haematoma [Recovering/Resolving]
  - Abdominal pain lower [Unknown]
  - Abdominal distension [Unknown]
  - Abdominal tenderness [Unknown]
  - Dysuria [Unknown]
  - Urge incontinence [Unknown]
  - Abdominal wall haemorrhage [Unknown]
